FAERS Safety Report 10529257 (Version 2)
Quarter: 2014Q4

REPORT INFORMATION
  Report Type: Spontaneous
  Country: US (occurrence: US)
  Receive Date: 20141020
  Receipt Date: 20141125
  Transmission Date: 20150528
  Serious: No
  Sender: FDA-Public Use
  Company Number: US-ACTELION-A-US2014-106904

PATIENT
  Age: 1 Year
  Sex: Male

DRUGS (1)
  1. ZAVESCA [Suspect]
     Active Substance: MIGLUSTAT
     Indication: NIEMANN-PICK DISEASE
     Dosage: 100 MG, QD
     Route: 048
     Dates: start: 20140314

REACTIONS (3)
  - Nuclear magnetic resonance imaging [Recovered/Resolved]
  - Lumbar puncture [Recovered/Resolved]
  - Pyrexia [Recovered/Resolved]
